FAERS Safety Report 13415929 (Version 3)
Quarter: 2017Q2

REPORT INFORMATION
  Report Type: Report from Study
  Country: None (occurrence: AT)
  Receive Date: 20170407
  Receipt Date: 20170622
  Transmission Date: 20170830
  Serious: Yes (Death, Hospitalization)
  Sender: FDA-Public Use
  Company Number: AT-ABBVIE-17P-009-1933172-00

PATIENT
  Age: 75 Year
  Sex: Male

DRUGS (2)
  1. DUODOPA [Suspect]
     Active Substance: CARBIDOPA\LEVODOPA
     Indication: PARKINSON^S DISEASE
     Dosage: 24H THERAPY:??MD: 2.6ML, CR DAYTIME: 3.2ML/H, CR NOCTURNAL: 2.8ML/H, ED: 1.6ML
     Route: 050
     Dates: start: 20130415
  2. DUODOPA [Suspect]
     Active Substance: CARBIDOPA\LEVODOPA
     Dosage: 16 H THERAPY:?MD: 2.6 ML?CR DAYTIME: 3.2 ML/H?ED: 1.6 ML
     Route: 050

REACTIONS (3)
  - Death [Fatal]
  - Anaemia [Not Recovered/Not Resolved]
  - Clostridium difficile infection [Not Recovered/Not Resolved]

NARRATIVE: CASE EVENT DATE: 20170325
